FAERS Safety Report 25952692 (Version 1)
Quarter: 2025Q4

REPORT INFORMATION
  Report Type: Spontaneous
  Country: US (occurrence: None)
  Receive Date: 20251022
  Receipt Date: 20251022
  Transmission Date: 20260118
  Serious: Yes (Other)
  Sender: FDA-CTU
  Company Number: None

PATIENT
  Age: 76 Year
  Sex: Female
  Weight: 77 kg

DRUGS (4)
  1. YIMMUGO [Suspect]
     Active Substance: HUMAN IMMUNOGLOBULIN G-DIRA
     Indication: Primary immunodeficiency syndrome
     Dosage: OTHER FREQUENCY : EVERY 4 WEEKS;?
     Route: 042
  2. Diphenhydramine 25mg PO premed [Concomitant]
     Dates: start: 20251021, end: 20251021
  3. Acetaminophen 650mg PO premed [Concomitant]
     Dates: start: 20251021, end: 20251021
  4. BENADRYL [Concomitant]
     Active Substance: DIPHENHYDRAMINE HYDROCHLORIDE
     Dates: start: 20251021, end: 20251021

REACTIONS (2)
  - Rash pruritic [None]
  - Rash erythematous [None]

NARRATIVE: CASE EVENT DATE: 20251021
